FAERS Safety Report 7911268-9 (Version None)
Quarter: 2011Q4

REPORT INFORMATION
  Report Type: 
  Country: None (occurrence: None)
  Receive Date: 20111114
  Receipt Date: 20111110
  Transmission Date: 20120403
  Serious: Yes (Other)
  Sender: FDA-Public Use
  Company Number: US-SHIRE-ALL1-2011-04403

PATIENT
  Sex: Male

DRUGS (2)
  1. FOSRENOL [Suspect]
     Indication: HYPERPHOSPHATAEMIA
     Dosage: 2000 MG ( TWO 1000 MG TABLETS THREE TIMES DAILY), 3X/DAY:TID
     Route: 048
     Dates: start: 20080401, end: 20110101
  2. FOSRENOL [Suspect]
     Indication: RENAL FAILURE CHRONIC

REACTIONS (1)
  - RENAL FAILURE [None]
